FAERS Safety Report 4901355-1 (Version None)
Quarter: 2006Q1

REPORT INFORMATION
  Report Type: 
  Country: None (occurrence: None)
  Receive Date: 20060206
  Receipt Date: 20060201
  Transmission Date: 20060701
  Serious: Yes (Death)
  Sender: FDA-Public Use
  Company Number: 2006AP00554

PATIENT
  Age: 69 Year
  Sex: Male

DRUGS (2)
  1. XYLOCAINE VISCOUS [Suspect]
     Indication: ANAESTHESIA
     Route: 065
     Dates: start: 20040501
  2. XYLOCAINE [Suspect]
     Indication: ANAESTHESIA
     Route: 049
     Dates: start: 20040501

REACTIONS (1)
  - SHOCK [None]
